FAERS Safety Report 9443376 (Version 3)
Quarter: 2014Q2

REPORT INFORMATION
  Report Type: Spontaneous
  Country: JP (occurrence: JP)
  Receive Date: 20130806
  Receipt Date: 20140624
  Transmission Date: 20141212
  Serious: Yes (Other)
  Sender: FDA-Public Use
  Company Number: JP-GLAXOSMITHKLINE-B0887718A

PATIENT
  Age: 35 Year
  Sex: Female
  Weight: 48 kg

DRUGS (10)
  1. VOLIBRIS [Suspect]
     Indication: PULMONARY HYPERTENSION
     Route: 048
     Dates: start: 20130627, end: 20130712
  2. FLOLAN [Suspect]
     Indication: PULMONARY HYPERTENSION
     Route: 042
     Dates: start: 20130419
  3. FUROSEMIDE [Suspect]
     Route: 048
     Dates: start: 20130501
  4. REVATIO [Concomitant]
     Dosage: 20MG THREE TIMES PER DAY
     Route: 048
     Dates: start: 20130419
  5. MIDAZOLAM [Concomitant]
  6. FENTANYL [Concomitant]
     Route: 042
  7. ROCURONIUM BROMIDE [Concomitant]
     Route: 042
  8. PROPOFOL [Concomitant]
  9. REMIFENTANIL HYDROCHLORIDE [Concomitant]
     Route: 042
  10. NITRIC OXIDE [Concomitant]
     Indication: ANAESTHESIA
     Route: 065

REACTIONS (4)
  - Renal impairment [Recovering/Resolving]
  - Premature labour [Unknown]
  - Uterine contractions abnormal [Unknown]
  - Exposure during pregnancy [Unknown]
